FAERS Safety Report 14636230 (Version 1)
Quarter: 2018Q1

REPORT INFORMATION
  Report Type: Not Available
  Country: US (occurrence: US)
  Receive Date: 20180314
  Receipt Date: 20180314
  Transmission Date: 20180509
  Serious: No
  Sender: FDA-Public Use
  Company Number: US-FOUNDATIONCONSUMERHC-2018-US-001730

PATIENT
  Age: 18 Year
  Sex: Female
  Weight: 43.09 kg

DRUGS (3)
  1. PLAN B ONE-STEP [Suspect]
     Active Substance: LEVONORGESTREL
     Dosage: 1.5MG
     Route: 048
     Dates: start: 20171229, end: 20171229
  2. PLAN B ONE-STEP [Suspect]
     Active Substance: LEVONORGESTREL
     Dosage: 1.5MG
     Route: 048
     Dates: start: 20171230, end: 20171230
  3. PLAN B ONE-STEP [Suspect]
     Active Substance: LEVONORGESTREL
     Dosage: 1.5MG
     Route: 048
     Dates: start: 20171228, end: 20171228

REACTIONS (2)
  - Vaginal discharge [Recovered/Resolved]
  - Menstrual disorder [Not Recovered/Not Resolved]

NARRATIVE: CASE EVENT DATE: 201801
